FAERS Safety Report 25598370 (Version 1)
Quarter: 2025Q3

REPORT INFORMATION
  Report Type: Spontaneous
  Country: US (occurrence: US)
  Receive Date: 20250723
  Receipt Date: 20250723
  Transmission Date: 20251020
  Serious: Yes (Other)
  Sender: KRAMER LABORATORIES
  Company Number: US-KRAMERLABS-2025-US-034940

PATIENT
  Sex: Female

DRUGS (1)
  1. NIZORAL PSORIASIS [Suspect]
     Active Substance: SALICYLIC ACID
     Indication: Product used for unknown indication
     Route: 061

REACTIONS (4)
  - Anaphylactic reaction [Unknown]
  - Application site pruritus [Unknown]
  - Application site pain [Unknown]
  - Lip swelling [Unknown]
